FAERS Safety Report 20603396 (Version 1)
Quarter: 2022Q1

REPORT INFORMATION
  Report Type: Spontaneous
  Country: US (occurrence: None)
  Receive Date: 20220315
  Receipt Date: 20220315
  Transmission Date: 20220423
  Serious: Yes (Life-Threatening, Hospitalization, Other)
  Sender: FDA-Public Use
  Company Number: None

PATIENT
  Age: 56 Year
  Sex: Female
  Weight: 141.97 kg

DRUGS (1)
  1. BENICAR [Suspect]
     Active Substance: OLMESARTAN MEDOXOMIL
     Dates: start: 20180903, end: 20180905

REACTIONS (4)
  - Palpitations [None]
  - Product substitution issue [None]
  - Thyroid disorder [None]
  - Therapy cessation [None]

NARRATIVE: CASE EVENT DATE: 20180905
